FAERS Safety Report 13193425 (Version 2)
Quarter: 2017Q4

REPORT INFORMATION
  Report Type: Spontaneous
  Country: US (occurrence: US)
  Receive Date: 20170207
  Receipt Date: 20171221
  Transmission Date: 20180320
  Serious: Yes (Other)
  Sender: FDA-Public Use
  Company Number: US-BRISTOL-MYERS SQUIBB COMPANY-BMS-2017-009284

PATIENT
  Sex: Male

DRUGS (1)
  1. OPDIVO [Suspect]
     Active Substance: NIVOLUMAB
     Indication: GLIOBLASTOMA
     Dosage: UNKNOWN
     Route: 042

REACTIONS (9)
  - Walking disability [Unknown]
  - Memory impairment [Unknown]
  - Speech disorder [Unknown]
  - Product use in unapproved indication [Unknown]
  - Seizure [Unknown]
  - Swelling [Unknown]
  - Thrombosis [Unknown]
  - Hepatic enzyme increased [Unknown]
  - Scar [Unknown]
